FAERS Safety Report 10934264 (Version 1)
Quarter: 2015Q1

REPORT INFORMATION
  Report Type: Spontaneous
  Country: US (occurrence: US)
  Receive Date: 20150320
  Receipt Date: 20150320
  Transmission Date: 20150721
  Serious: Yes (Congenital Anomaly, Other)
  Sender: FDA-Public Use
  Company Number: US-SA-2015SA033080

PATIENT
  Sex: Male

DRUGS (2)
  1. LOVENOX [Suspect]
     Active Substance: ENOXAPARIN SODIUM
     Route: 064
  2. HEPARIN [Suspect]
     Active Substance: HEPARIN SODIUM
     Route: 064

REACTIONS (6)
  - Foetal exposure during pregnancy [Unknown]
  - Multiple fractures [Not Recovered/Not Resolved]
  - Congenital anomaly [Not Recovered/Not Resolved]
  - Bone disorder [Not Recovered/Not Resolved]
  - Foetal hypokinesia [Unknown]
  - Body height below normal [Not Recovered/Not Resolved]

NARRATIVE: CASE EVENT DATE: 2013
